FAERS Safety Report 8502689-4 (Version None)
Quarter: 2012Q3

REPORT INFORMATION
  Report Type: 
  Country: None (occurrence: None)
  Receive Date: 20120702
  Receipt Date: 20120625
  Transmission Date: 20120928
  Serious: Yes (Congenital Anomaly, Other)
  Sender: FDA-Public Use
  Company Number: GER/GER/12/0024801

PATIENT
  Sex: Female
  Weight: 3.93 kg

DRUGS (3)
  1. RITALIN [Suspect]
     Indication: PRODUCT USED FOR UNKNOWN INDICATION
     Dosage: 20 MG, 1 D, TRANSPLACENTAL  ONE YEAR AGO
     Route: 064
  2. CITALOPRAM HYDROBROMIDE [Suspect]
     Indication: PRODUCT USED FOR UNKNOWN INDICATION
     Dosage: 20 MG, 1 D, TRANSPLACENTAL
     Route: 064
  3. FOLIO [Concomitant]

REACTIONS (3)
  - CLEFT LIP AND PALATE [None]
  - POSTMATURE BABY [None]
  - MATERNAL DRUGS AFFECTING FOETUS [None]
